FAERS Safety Report 4877972-4 (Version None)
Quarter: 2005Q4

REPORT INFORMATION
  Report Type: 
  Country: None (occurrence: None)
  Receive Date: 20051206
  Receipt Date: 20050912
  Transmission Date: 20060501
  Serious: No
  Sender: FDA-Public Use
  Company Number: USA0509107863

PATIENT
  Age: 43 Year
  Sex: Female
  Weight: 52 kg

DRUGS (1)
  1. CYMBALTA [Suspect]
     Indication: FIBROMYALGIA
     Dosage: 120 MG
     Dates: start: 20050815

REACTIONS (4)
  - DIZZINESS [None]
  - DYSPNOEA [None]
  - FATIGUE [None]
  - MEMORY IMPAIRMENT [None]
